FAERS Safety Report 20633075 (Version 4)
Quarter: 2022Q3

REPORT INFORMATION
  Report Type: Report from Study
  Country: US (occurrence: US)
  Receive Date: 20220324
  Receipt Date: 20220830
  Transmission Date: 20221027
  Serious: Yes (Death, Life-Threatening, Hospitalization, Other)
  Sender: FDA-Public Use
  Company Number: US-BRISTOL-MYERS SQUIBB COMPANY-BMS-2022-020052

PATIENT
  Age: 65 Year
  Sex: Male
  Weight: 70 kg

DRUGS (15)
  1. IPILIMUMAB [Suspect]
     Active Substance: IPILIMUMAB
     Indication: Hepatocellular carcinoma
     Route: 065
     Dates: start: 20210809, end: 20210809
  2. IPILIMUMAB [Suspect]
     Active Substance: IPILIMUMAB
     Route: 065
     Dates: start: 20211013, end: 20211013
  3. MEGACE [Concomitant]
     Active Substance: MEGESTROL ACETATE
     Indication: Adverse event
     Dosage: 30
     Route: 048
     Dates: start: 20210921
  4. BETAMETHASONE [Concomitant]
     Active Substance: BETAMETHASONE
     Indication: Adverse event
     Route: 061
     Dates: start: 20211013
  5. SYNTHROID [Concomitant]
     Active Substance: LEVOTHYROXINE SODIUM
     Indication: Adverse event
     Dosage: 112 UNIT NOS
     Route: 048
     Dates: start: 20220106
  6. SYNTHROID [Concomitant]
     Active Substance: LEVOTHYROXINE SODIUM
     Dosage: 100 UNIT NOS
     Route: 048
     Dates: start: 20211013, end: 20220105
  7. HUMULIN R [Concomitant]
     Active Substance: INSULIN HUMAN
     Indication: Product used for unknown indication
     Dosage: 10
     Route: 058
     Dates: start: 20210830
  8. HUMULIN N [Concomitant]
     Active Substance: INSULIN HUMAN
     Indication: Product used for unknown indication
     Dosage: 25
     Route: 058
     Dates: start: 20210830
  9. PREDNISONE [Concomitant]
     Active Substance: PREDNISONE
     Indication: Adverse event
     Route: 048
     Dates: start: 20211130
  10. HALOBETASOL PROPIONATE TOPICAL BID [Concomitant]
     Indication: Adverse event
     Dosage: BID
     Route: 061
     Dates: start: 20220105
  11. LIDOCAINE VISCOUS [Concomitant]
     Active Substance: LIDOCAINE HYDROCHLORIDE
     Indication: Adverse event
     Dosage: 30
     Route: 048
     Dates: start: 20210811
  12. NYSTATIN [Concomitant]
     Active Substance: NYSTATIN
     Indication: Adverse event
     Dosage: 30
     Route: 048
     Dates: start: 20210811
  13. BENADRYL [Concomitant]
     Active Substance: DIPHENHYDRAMINE HYDROCHLORIDE
     Indication: Adverse event
     Dosage: 30
     Route: 048
     Dates: start: 20210811
  14. BISMUTH SUBSALICYLATE [Concomitant]
     Active Substance: BISMUTH SUBSALICYLATE
     Indication: Adverse event
     Dosage: 30
     Route: 048
     Dates: start: 20210811
  15. BISMUTH SUBSALICYLATE [Concomitant]
     Active Substance: BISMUTH SUBSALICYLATE
     Dosage: 30
     Route: 048
     Dates: start: 20210824

REACTIONS (2)
  - Hyponatraemia [Fatal]
  - Respiratory failure [Unknown]

NARRATIVE: CASE EVENT DATE: 20220114
